FAERS Safety Report 20420385 (Version 1)
Quarter: 2022Q1

REPORT INFORMATION
  Report Type: Spontaneous
  Country: US (occurrence: None)
  Receive Date: 20220202
  Receipt Date: 20220202
  Transmission Date: 20220423
  Serious: Yes (Death)
  Sender: FDA-Public Use
  Company Number: None

PATIENT
  Age: 71 Year
  Sex: Female

DRUGS (1)
  1. ZARXIO [Suspect]
     Active Substance: FILGRASTIM-SNDZ
     Indication: Gallbladder adenocarcinoma
     Dosage: FREQUENCY : AS DIRECTED;?
     Route: 058

REACTIONS (2)
  - Systemic lupus erythematosus [None]
  - Sjogren^s syndrome [None]

NARRATIVE: CASE EVENT DATE: 20211122
